FAERS Safety Report 6417548-0 (Version None)
Quarter: 2009Q4

REPORT INFORMATION
  Report Type: 
  Country: None (occurrence: None)
  Receive Date: 20091023
  Receipt Date: 20091013
  Transmission Date: 20100525
  Serious: Yes (Death, Other)
  Sender: FDA-Public Use
  Company Number: ADR36342009

PATIENT
  Age: 75 Year
  Sex: Male

DRUGS (3)
  1. SIMVASTATIN, 40 MG (MFR: UNKNOWN) [Suspect]
     Indication: HYPERCHOLESTEROLAEMIA
     Dosage: 40 MG, ORAL
     Route: 048
     Dates: start: 20061214, end: 20061219
  2. CALCICHEW-D3 [Concomitant]
  3. OMEPRAZOLE [Concomitant]

REACTIONS (9)
  - ALPHA HAEMOLYTIC STREPTOCOCCAL INFECTION [None]
  - DISSEMINATED INTRAVASCULAR COAGULATION [None]
  - DRUG HYPERSENSITIVITY [None]
  - DYSPEPSIA [None]
  - ESCHERICHIA INFECTION [None]
  - HAEMOLYSIS [None]
  - LIVER INJURY [None]
  - MALAISE [None]
  - VIRAL INFECTION [None]
